FAERS Safety Report 5993462-X (Version None)
Quarter: 2008Q4

REPORT INFORMATION
  Report Type: 
  Country: None (occurrence: None)
  Receive Date: 20081212
  Receipt Date: 20081203
  Transmission Date: 20090506
  Serious: Yes (Other)
  Sender: FDA-Public Use
  Company Number: FR-JNJFOC-20081200008

PATIENT
  Age: 75 Year
  Sex: Male
  Weight: 89 kg

DRUGS (4)
  1. DOXORUBICIN HCL [Suspect]
     Indication: MYELOMA RECURRENCE
     Route: 042
  2. VELCADE [Suspect]
     Route: 065
  3. VELCADE [Suspect]
     Indication: MYELOMA RECURRENCE
     Route: 065
  4. DEXAMETHASONE [Concomitant]
     Indication: MYELOMA RECURRENCE
     Route: 065

REACTIONS (6)
  - CONSTIPATION [None]
  - DIARRHOEA [None]
  - GENERAL PHYSICAL CONDITION ABNORMAL [None]
  - SUBILEUS [None]
  - THROMBOCYTOPENIA [None]
  - WEIGHT DECREASED [None]
